FAERS Safety Report 9788367 (Version 1)
Quarter: 2013Q4

REPORT INFORMATION
  Report Type: Other
  Country: GB (occurrence: GB)
  Receive Date: 20131230
  Receipt Date: 20131230
  Transmission Date: 20140711
  Serious: Yes (Other)
  Sender: FDA-Public Use
  Company Number: GB-PERRIGO-13GB012986

PATIENT
  Sex: 0

DRUGS (6)
  1. DEXSOL 0.4MG/ML PL00427/0137 [Suspect]
     Indication: GENERAL ANAESTHESIA
     Route: 042
     Dates: start: 20130325, end: 20130325
  2. TARGOCID [Suspect]
     Indication: ANTIBIOTIC PROPHYLAXIS
     Route: 042
     Dates: start: 20130325, end: 20130325
  3. MIDAZOLAM [Suspect]
     Indication: GENERAL ANAESTHESIA
     Route: 042
     Dates: start: 20130325, end: 20130325
  4. PROPOFOL [Suspect]
     Indication: GENERAL ANAESTHESIA
     Route: 042
     Dates: start: 20130325, end: 20130325
  5. ROCURONIUM [Suspect]
     Indication: GENERAL ANAESTHESIA
     Route: 042
     Dates: start: 20130325, end: 20130325
  6. REMIFENTANIL [Suspect]
     Indication: GENERAL ANAESTHESIA
     Dosage: UNK
     Route: 065
     Dates: start: 20130325, end: 20130325

REACTIONS (1)
  - Procedural hypotension [Recovered/Resolved]
